FAERS Safety Report 5196101-3 (Version None)
Quarter: 2006Q4

REPORT INFORMATION
  Report Type: 
  Country: None (occurrence: None)
  Receive Date: 20061226
  Receipt Date: 20061219
  Transmission Date: 20070319
  Serious: Yes (Life-Threatening, Hospitalization, Disabling)
  Sender: FDA-Public Use
  Company Number: DEWYE890119DEC06

PATIENT
  Sex: Male

DRUGS (1)
  1. TREVILOR RETARD (VENLAFAXINE HYDROCHLORIDE, EXTENDED RELEASE) [Suspect]
     Indication: DEPRESSION
     Dosage: 75 MG 1X PER 1 DAY ORAL
     Route: 048
     Dates: start: 20030612, end: 20060101

REACTIONS (2)
  - PANCREATITIS [None]
  - PSEUDOCYST [None]
